FAERS Safety Report 4788462-1 (Version None)
Quarter: 2005Q4

REPORT INFORMATION
  Report Type: 
  Country: None (occurrence: None)
  Receive Date: 20051005
  Receipt Date: 20051005
  Transmission Date: 20060501
  Serious: Yes (Life-Threatening, Hospitalization)
  Sender: FDA-Public Use
  Company Number: None

PATIENT
  Age: 42 Year
  Sex: Male

DRUGS (1)
  1. ADVAIR - NON-COMPLIANT [Suspect]
     Indication: ASTHMA
     Dosage: 500/500, INH
     Route: 055

REACTIONS (2)
  - DYSPNOEA [None]
  - WHEEZING [None]
